FAERS Safety Report 19503562 (Version 2)
Quarter: 2021Q3

REPORT INFORMATION
  Report Type: Spontaneous
  Country: ES (occurrence: ES)
  Receive Date: 20210708
  Receipt Date: 20210722
  Transmission Date: 20211014
  Serious: Yes (Disabling, Other)
  Sender: FDA-Public Use
  Company Number: ES-EXELTIS PHARMACEUTICAL HOLDING, S.L.-2106ES00723

PATIENT
  Age: 49 Year
  Sex: Female
  Weight: 76 kg

DRUGS (2)
  1. TRYPTIZOLE [Concomitant]
     Active Substance: AMITRIPTYLINE HYDROCHLORIDE
     Indication: MIGRAINE
  2. SLINDA [Suspect]
     Active Substance: DROSPIRENONE
     Indication: HEAVY MENSTRUAL BLEEDING
     Dosage: 4 MILLIGRAM, QD
     Route: 048
     Dates: start: 202002, end: 202004

REACTIONS (2)
  - Off label use [Unknown]
  - Haemorrhoids thrombosed [Recovered/Resolved]

NARRATIVE: CASE EVENT DATE: 202004
